FAERS Safety Report 18380918 (Version 1)
Quarter: 2020Q4

REPORT INFORMATION
  Report Type: Spontaneous
  Country: US (occurrence: US)
  Receive Date: 20201014
  Receipt Date: 20201014
  Transmission Date: 20210114
  Serious: Yes (Other)
  Sender: FDA-Public Use
  Company Number: US-LUPIN PHARMACEUTICALS INC.-2020-05303

PATIENT
  Age: 12 Year
  Sex: Female

DRUGS (7)
  1. CLOBETASOL PROPIONATE OINTMENT [Suspect]
     Active Substance: CLOBETASOL PROPIONATE
     Indication: NECROBIOSIS LIPOIDICA DIABETICORUM
     Dosage: UNK, OINTMENT
     Route: 061
  2. TRIAMCINOLONE [Suspect]
     Active Substance: TRIAMCINOLONE
     Indication: NECROBIOSIS LIPOIDICA DIABETICORUM
     Dosage: 7.5 MILLIGRAM (5 MG/ML)
     Route: 026
  3. TRIAMCINOLONE [Suspect]
     Active Substance: TRIAMCINOLONE
     Dosage: 10 MILLIGRAM
     Route: 026
  4. TACROLIMUS. [Suspect]
     Active Substance: TACROLIMUS
     Indication: NECROBIOSIS LIPOIDICA DIABETICORUM
     Dosage: UNK
     Route: 061
  5. TRIAMCINOLONE [Suspect]
     Active Substance: TRIAMCINOLONE
     Dosage: 10 MILLIGRAM
     Route: 026
  6. TRIAMCINOLONE [Suspect]
     Active Substance: TRIAMCINOLONE
     Dosage: UPTO 15 MILLIGRAM (THREE ADDITIONAL INJECTIONS)
     Route: 026
  7. TRIAMCINOLONE [Suspect]
     Active Substance: TRIAMCINOLONE
     Dosage: 15 MILLIGRAM
     Route: 026

REACTIONS (2)
  - Drug ineffective [Unknown]
  - Skin atrophy [Recovered/Resolved]
